FAERS Safety Report 15001673 (Version 2)
Quarter: 2019Q3

REPORT INFORMATION
  Report Type: Spontaneous
  Country: DE (occurrence: DE)
  Receive Date: 20180612
  Receipt Date: 20190806
  Transmission Date: 20191004
  Serious: Yes (Hospitalization, Other)
  Sender: FDA-Public Use
  Company Number: DE-MYLANLABS-2018M1038556

PATIENT
  Age: 64 Year

DRUGS (4)
  1. SIMVASTATIN. [Concomitant]
     Active Substance: SIMVASTATIN
     Indication: PRODUCT USED FOR UNKNOWN INDICATION
     Dosage: 10 MILLIGRAM(10 MG, 0-0-1)
  2. METOPROLOL. [Concomitant]
     Active Substance: METOPROLOL
     Indication: HYPERTENSION
     Dosage: 48 MILLIGRAM(47.5 MG, 1-0-0)
  3. METFORMIN [Suspect]
     Active Substance: METFORMIN HYDROCHLORIDE
     Indication: TYPE 2 DIABETES MELLITUS
     Dosage: UNK
  4. METFORMIN [Suspect]
     Active Substance: METFORMIN HYDROCHLORIDE
     Dosage: 2000 MILLIGRAM, QD(1000 MG 1-0-1)
     Dates: start: 201202

REACTIONS (10)
  - Pleural effusion [Recovered/Resolved]
  - Ascites [Recovered/Resolved]
  - Acute kidney injury [Unknown]
  - Lactic acidosis [Unknown]
  - Drug level increased [Recovered/Resolved]
  - Metabolic acidosis [Unknown]
  - Malaise [Unknown]
  - Dehydration [Unknown]
  - Ventricular tachycardia [Unknown]
  - Rectal haemorrhage [Unknown]
